FAERS Safety Report 9133731 (Version 1)
Quarter: 2013Q1

REPORT INFORMATION
  Report Type: Spontaneous
  Country: US (occurrence: US)
  Receive Date: 20130302
  Receipt Date: 20130302
  Transmission Date: 20140127
  Serious: No
  Sender: FDA-Public Use
  Company Number: US-ASTRAZENECA-2013SE10536

PATIENT
  Sex: Female
  Weight: 55.3 kg

DRUGS (3)
  1. NEXIUM [Suspect]
     Indication: REFLUX LARYNGITIS
     Route: 048
     Dates: start: 201301
  2. ZYRTEC [Concomitant]
  3. FLONASE [Concomitant]

REACTIONS (3)
  - Dyspepsia [Unknown]
  - Oropharyngeal pain [Unknown]
  - Drug ineffective [Unknown]
